FAERS Safety Report 9096089 (Version 7)
Quarter: 2014Q2

REPORT INFORMATION
  Report Type: Spontaneous
  Country: JP (occurrence: JP)
  Receive Date: 20130207
  Receipt Date: 20140415
  Transmission Date: 20141212
  Serious: Yes (Death, Life-Threatening, Hospitalization, Other)
  Sender: FDA-Public Use
  Company Number: JP-PFIZER INC-2013047643

PATIENT
  Age: 60 Year
  Sex: Female
  Weight: 36 kg

DRUGS (17)
  1. SUTENT [Suspect]
     Indication: PANCREATIC NEUROENDOCRINE TUMOUR
     Dosage: 37.5 MG, 1X/DAY
     Route: 048
     Dates: start: 20121205, end: 20121213
  2. SANDOSTATIN LAR [Concomitant]
     Indication: CUSHING^S SYNDROME
     Dosage: 30 MG, 1X/4 WEEKS
     Route: 030
     Dates: start: 201107, end: 201212
  3. CABASER [Concomitant]
     Indication: CUSHING^S SYNDROME
     Dosage: 1.0 MG, 2X/WEEK
     Route: 048
     Dates: start: 201110, end: 201111
  4. CABASER [Concomitant]
     Dosage: 2 MG, 1X/DAY
     Route: 048
     Dates: start: 201111, end: 201212
  5. METOPIRON [Concomitant]
     Indication: CUSHING^S SYNDROME
     Dosage: 500 MG, 3X/DAY
     Route: 048
     Dates: start: 200901, end: 201301
  6. CORTRIL [Concomitant]
     Dosage: 15 MG, 1X/DAY
     Route: 048
     Dates: start: 200903, end: 201212
  7. SELARA [Concomitant]
     Indication: HYPERTENSION
     Dosage: 25 MG, 2X/DAY
     Route: 048
     Dates: start: 201004, end: 201212
  8. OLMETEC [Concomitant]
     Indication: HYPERTENSION
     Dosage: 20 MG, 1X/DAY
     Route: 048
     Dates: start: 201004, end: 201212
  9. AMLODIN OD [Concomitant]
     Indication: HYPERTENSION
     Dosage: 10 MG, 1X/DAY
     Route: 048
     Dates: start: 201105, end: 201212
  10. FENTOS [Concomitant]
     Route: 062
  11. LYRICA [Concomitant]
     Route: 048
  12. BONALON [Concomitant]
     Indication: OSTEOPOROSIS
     Dosage: UNK
     Route: 048
     Dates: end: 20121204
  13. THYRADIN S [Concomitant]
     Indication: HYPOTHYROIDISM
     Dosage: UNK
     Route: 048
     Dates: start: 20121205
  14. ZOMETA [Concomitant]
     Indication: OSTEOPOROSIS
     Dosage: UNK
     Route: 041
     Dates: start: 20121205
  15. ALFAROL [Concomitant]
     Indication: OSTEOPOROSIS
     Route: 048
  16. SANDOSTATIN [Concomitant]
     Indication: CUSHING^S SYNDROME
  17. BACTAR TABLETS [Concomitant]
     Indication: INFECTION PROPHYLAXIS
     Dosage: UNK
     Route: 048
     Dates: start: 20121205

REACTIONS (16)
  - Fungal sepsis [Fatal]
  - Gastrointestinal necrosis [Fatal]
  - Arterial thrombosis [Recovered/Resolved with Sequelae]
  - Blood pressure decreased [Unknown]
  - Dehydration [Unknown]
  - Disseminated intravascular coagulation [Unknown]
  - Acute respiratory distress syndrome [Unknown]
  - Bronchopulmonary aspergillosis [Unknown]
  - Convulsion [Unknown]
  - Haemoptysis [Unknown]
  - Vomiting [Unknown]
  - Abdominal pain [Unknown]
  - Diarrhoea [Unknown]
  - Nausea [Unknown]
  - Platelet count decreased [Unknown]
  - Oral herpes [Unknown]
